FAERS Safety Report 15414937 (Version 1)
Quarter: 2018Q3

REPORT INFORMATION
  Report Type: Spontaneous
  Country: DE (occurrence: DE)
  Receive Date: 20180921
  Receipt Date: 20180921
  Transmission Date: 20181010
  Serious: Yes (Other)
  Sender: FDA-Public Use
  Company Number: DE-SHIRE-DE201836055

PATIENT

DRUGS (5)
  1. RANITIDINE. [Concomitant]
     Active Substance: RANITIDINE
     Indication: PRODUCT USED FOR UNKNOWN INDICATION
  2. PANTOPRAZOLE [Concomitant]
     Active Substance: PANTOPRAZOLE
     Indication: GASTRITIS
  3. REVESTIVE [Suspect]
     Active Substance: TEDUGLUTIDE
     Indication: SHORT-BOWEL SYNDROME
     Dosage: 0.28 ML, 1X/DAY:QD (DAILY)
     Route: 058
     Dates: start: 20171201, end: 20180910
  4. VITAMIN D [Concomitant]
     Active Substance: CHOLECALCIFEROL
     Indication: PRODUCT USED FOR UNKNOWN INDICATION
  5. MCP [Concomitant]
     Active Substance: METOCLOPRAMIDE HYDROCHLORIDE
     Indication: PRODUCT USED FOR UNKNOWN INDICATION

REACTIONS (12)
  - Impaired gastric emptying [Unknown]
  - Vomiting [Not Recovered/Not Resolved]
  - Decreased appetite [Unknown]
  - Impaired quality of life [Unknown]
  - Dehydration [Unknown]
  - Abdominal pain upper [Not Recovered/Not Resolved]
  - Abdominal distension [Unknown]
  - Abdominal discomfort [Unknown]
  - Feeding disorder [Unknown]
  - Influenza [Recovering/Resolving]
  - Nausea [Not Recovered/Not Resolved]
  - Weight decreased [Not Recovered/Not Resolved]

NARRATIVE: CASE EVENT DATE: 20180825
